FAERS Safety Report 17302197 (Version 1)
Quarter: 2020Q1

REPORT INFORMATION
  Report Type: Spontaneous
  Country: SE (occurrence: SE)
  Receive Date: 20200122
  Receipt Date: 20200122
  Transmission Date: 20200409
  Serious: Yes (Hospitalization)
  Sender: FDA-Public Use
  Company Number: SE-MYLANLABS-2020M1007625

PATIENT
  Age: 26 Year
  Sex: Male

DRUGS (1)
  1. LERGIGAN (PROMETHAZINE) [Suspect]
     Active Substance: PROMETHAZINE HYDROCHLORIDE
     Indication: PRODUCT USED FOR UNKNOWN INDICATION
     Dosage: 15-25 ST. 25 MG LERGIGAN
     Route: 048
     Dates: start: 20180902, end: 20180902

REACTIONS (5)
  - Mucosal dryness [Unknown]
  - Sinus tachycardia [Unknown]
  - Akathisia [Unknown]
  - Somnolence [Unknown]
  - Intentional overdose [Unknown]

NARRATIVE: CASE EVENT DATE: 20180902
